FAERS Safety Report 9769921 (Version 2)
Quarter: 2013Q4

REPORT INFORMATION
  Report Type: Spontaneous
  Country: US (occurrence: US)
  Receive Date: 20131218
  Receipt Date: 20131218
  Transmission Date: 20140711
  Serious: No
  Sender: FDA-Public Use
  Company Number: US-VERTEX PHARMACEUTICALS INC-AE-2011-000679

PATIENT
  Age: 62 Year
  Sex: Male
  Weight: 111.36 kg

DRUGS (4)
  1. INCIVEK [Suspect]
     Indication: HEPATITIS C
     Dates: start: 20110721
  2. PEGASYS [Concomitant]
     Indication: HEPATITIS C
     Dates: start: 20110721
  3. COPEGUS [Concomitant]
     Indication: HEPATITIS C
     Dates: start: 20110721
  4. LISIN/HCTZ [Concomitant]
     Indication: BLOOD PRESSURE INCREASED

REACTIONS (3)
  - Rectal haemorrhage [Not Recovered/Not Resolved]
  - Pruritus [Not Recovered/Not Resolved]
  - Anorectal discomfort [Not Recovered/Not Resolved]
